FAERS Safety Report 10243484 (Version 1)
Quarter: 2014Q2

REPORT INFORMATION
  Report Type: Spontaneous
  Country: US (occurrence: US)
  Receive Date: 20140618
  Receipt Date: 20140618
  Transmission Date: 20141212
  Serious: No
  Sender: FDA-Public Use
  Company Number: US-B.I. PHARMACEUTICALS,INC./RIDGEFIELD-2014-BI-25775BP

PATIENT
  Sex: Male
  Weight: 52 kg

DRUGS (9)
  1. ATROVENT INHALATION SOLUTION [Suspect]
     Indication: ASTHMA
     Dosage: DAILY DOSE: 17 MCG AS NEEDED
     Route: 055
     Dates: start: 2004
  2. XOPENEX [Concomitant]
     Indication: ASTHMA
     Route: 055
     Dates: start: 2004
  3. FLOVENT [Concomitant]
     Indication: ASTHMA
     Route: 055
     Dates: start: 2004
  4. ZANTAC [Concomitant]
     Indication: DUODENOGASTRIC REFLUX
     Route: 048
  5. CIMETIDINE [Concomitant]
     Indication: DUODENOGASTRIC REFLUX
     Route: 048
  6. LANSOPRAZOLE [Concomitant]
     Indication: DUODENOGASTRIC REFLUX
     Route: 048
  7. LORAZEPAM [Concomitant]
     Indication: INSOMNIA
     Route: 048
     Dates: start: 2009
  8. XANAX [Concomitant]
     Indication: INSOMNIA
     Route: 048
     Dates: start: 1994
  9. PANCRELIPASE [Concomitant]
     Indication: SUPPLEMENTATION THERAPY
     Dosage: DOSE PER APPLICATION: 5000 USP;
     Route: 048
     Dates: start: 2004

REACTIONS (3)
  - Sleep apnoea syndrome [Not Recovered/Not Resolved]
  - Vocal cord disorder [Not Recovered/Not Resolved]
  - Off label use [Unknown]
